FAERS Safety Report 18789597 (Version 1)
Quarter: 2021Q1

REPORT INFORMATION
  Report Type: Other
  Country: US (occurrence: US)
  Receive Date: 20210125
  Receipt Date: 20210125
  Transmission Date: 20210419
  Serious: Yes (Hospitalization)
  Sender: FDA-Public Use
  Company Number: US-B.BRAUN MEDICAL INC.-2105802

PATIENT
  Age: 64 Year
  Sex: Male

DRUGS (1)
  1. POTASSIUM CHLORIDE FOR INJECTION CONCENTRATE USP 0264?1940?20 (ANDA 08 [Suspect]
     Active Substance: POTASSIUM CHLORIDE
     Indication: HYPOKALAEMIA
     Route: 042

REACTIONS (1)
  - Therapy non-responder [None]
